FAERS Safety Report 23019980 (Version 1)
Quarter: 2023Q4

REPORT INFORMATION
  Report Type: Other
  Country: US (occurrence: None)
  Receive Date: 20231003
  Receipt Date: 20231003
  Transmission Date: 20240109
  Serious: Yes (Hospitalization, Other)
  Sender: FDA-Public Use
  Company Number: US-ROCHE-3429426

PATIENT
  Age: 73 Year
  Sex: Female
  Weight: 53.572 kg

DRUGS (3)
  1. OCREVUS [Suspect]
     Active Substance: OCRELIZUMAB
     Indication: Progressive multiple sclerosis
     Dosage: INITIAL DOSE AS 300 MG IV EVERY 2 WEEKS, THEN SUBSEQUENT DOSE AS 600 MG EVERY 6 MONTHS.?LAST DATE OF
     Route: 042
  2. OCREVUS [Suspect]
     Active Substance: OCRELIZUMAB
     Indication: Relapsing multiple sclerosis
  3. MORPHINE [Concomitant]
     Active Substance: MORPHINE
     Indication: Pain
     Route: 048
     Dates: start: 202309

REACTIONS (4)
  - Cerebrovascular accident [Unknown]
  - Decubitus ulcer [Not Recovered/Not Resolved]
  - Osteomyelitis [Not Recovered/Not Resolved]
  - Infection [Unknown]

NARRATIVE: CASE EVENT DATE: 20230523
